FAERS Safety Report 25256021 (Version 2)
Quarter: 2025Q3

REPORT INFORMATION
  Report Type: Report from Study
  Country: KR (occurrence: KR)
  Receive Date: 20250430
  Receipt Date: 20250825
  Transmission Date: 20251020
  Serious: Yes (Death)
  Sender: MYLAN
  Company Number: KR-MYLANLABS-2025M1036685

PATIENT
  Age: 64 Year
  Sex: Male
  Weight: 41.4 kg

DRUGS (60)
  1. PRETOMANID [Suspect]
     Active Substance: PRETOMANID
     Indication: Tuberculosis
     Dosage: 200 MILLIGRAM, QD
     Dates: start: 20250114, end: 20250404
  2. PRETOMANID [Suspect]
     Active Substance: PRETOMANID
     Dosage: 200 MILLIGRAM, QD
     Dates: start: 20250114, end: 20250404
  3. PRETOMANID [Suspect]
     Active Substance: PRETOMANID
     Dosage: 200 MILLIGRAM, QD
     Route: 048
     Dates: start: 20250114, end: 20250404
  4. PRETOMANID [Suspect]
     Active Substance: PRETOMANID
     Dosage: 200 MILLIGRAM, QD
     Route: 048
     Dates: start: 20250114, end: 20250404
  5. PRETOMANID [Suspect]
     Active Substance: PRETOMANID
     Dosage: 200 MILLIGRAM, QD
     Dates: start: 20250414, end: 20250420
  6. PRETOMANID [Suspect]
     Active Substance: PRETOMANID
     Dosage: 200 MILLIGRAM, QD
     Dates: start: 20250414, end: 20250420
  7. PRETOMANID [Suspect]
     Active Substance: PRETOMANID
     Dosage: 200 MILLIGRAM, QD
     Route: 048
     Dates: start: 20250414, end: 20250420
  8. PRETOMANID [Suspect]
     Active Substance: PRETOMANID
     Dosage: 200 MILLIGRAM, QD
     Route: 048
     Dates: start: 20250414, end: 20250420
  9. BEDAQUILINE [Suspect]
     Active Substance: BEDAQUILINE
     Indication: Tuberculosis
     Dosage: 400 MILLIGRAM, QD
     Dates: start: 20250114, end: 20250127
  10. BEDAQUILINE [Suspect]
     Active Substance: BEDAQUILINE
     Dosage: 400 MILLIGRAM, QD
     Dates: start: 20250114, end: 20250127
  11. BEDAQUILINE [Suspect]
     Active Substance: BEDAQUILINE
     Dosage: 400 MILLIGRAM, QD
     Route: 048
     Dates: start: 20250114, end: 20250127
  12. BEDAQUILINE [Suspect]
     Active Substance: BEDAQUILINE
     Dosage: 400 MILLIGRAM, QD
     Route: 048
     Dates: start: 20250114, end: 20250127
  13. BEDAQUILINE [Suspect]
     Active Substance: BEDAQUILINE
     Dates: start: 20250128, end: 20250404
  14. BEDAQUILINE [Suspect]
     Active Substance: BEDAQUILINE
     Dates: start: 20250128, end: 20250404
  15. BEDAQUILINE [Suspect]
     Active Substance: BEDAQUILINE
     Route: 048
     Dates: start: 20250128, end: 20250404
  16. BEDAQUILINE [Suspect]
     Active Substance: BEDAQUILINE
     Route: 048
     Dates: start: 20250128, end: 20250404
  17. BEDAQUILINE [Suspect]
     Active Substance: BEDAQUILINE
     Dates: start: 20250414, end: 20250420
  18. BEDAQUILINE [Suspect]
     Active Substance: BEDAQUILINE
     Route: 048
     Dates: start: 20250414, end: 20250420
  19. BEDAQUILINE [Suspect]
     Active Substance: BEDAQUILINE
     Dates: start: 20250414, end: 20250420
  20. BEDAQUILINE [Suspect]
     Active Substance: BEDAQUILINE
     Route: 048
     Dates: start: 20250414, end: 20250420
  21. LINEZOLID [Suspect]
     Active Substance: LINEZOLID
     Indication: Tuberculosis
     Dosage: 600 MILLIGRAM, QD
     Dates: start: 20250114, end: 20250404
  22. LINEZOLID [Suspect]
     Active Substance: LINEZOLID
     Dosage: 600 MILLIGRAM, QD
     Dates: start: 20250114, end: 20250404
  23. LINEZOLID [Suspect]
     Active Substance: LINEZOLID
     Dosage: 600 MILLIGRAM, QD
     Route: 048
     Dates: start: 20250114, end: 20250404
  24. LINEZOLID [Suspect]
     Active Substance: LINEZOLID
     Dosage: 600 MILLIGRAM, QD
     Route: 048
     Dates: start: 20250114, end: 20250404
  25. LINEZOLID [Suspect]
     Active Substance: LINEZOLID
     Dosage: 600 MILLIGRAM, QD
     Dates: start: 20250414, end: 20250420
  26. LINEZOLID [Suspect]
     Active Substance: LINEZOLID
     Dosage: 600 MILLIGRAM, QD
     Dates: start: 20250414, end: 20250420
  27. LINEZOLID [Suspect]
     Active Substance: LINEZOLID
     Dosage: 600 MILLIGRAM, QD
     Route: 048
     Dates: start: 20250414, end: 20250420
  28. LINEZOLID [Suspect]
     Active Substance: LINEZOLID
     Dosage: 600 MILLIGRAM, QD
     Route: 048
     Dates: start: 20250414, end: 20250420
  29. AVELOX [Concomitant]
     Active Substance: MOXIFLOXACIN HYDROCHLORIDE
     Indication: Tuberculosis
     Dosage: 400 MILLIGRAM, QD
     Dates: start: 20250114, end: 20250310
  30. AVELOX [Concomitant]
     Active Substance: MOXIFLOXACIN HYDROCHLORIDE
     Dosage: 400 MILLIGRAM, QD
     Route: 048
     Dates: start: 20250114, end: 20250310
  31. AVELOX [Concomitant]
     Active Substance: MOXIFLOXACIN HYDROCHLORIDE
     Dosage: 400 MILLIGRAM, QD
     Route: 048
     Dates: start: 20250114, end: 20250310
  32. AVELOX [Concomitant]
     Active Substance: MOXIFLOXACIN HYDROCHLORIDE
     Dosage: 400 MILLIGRAM, QD
     Dates: start: 20250114, end: 20250310
  33. QUETIAPINE FUMARATE [Concomitant]
     Active Substance: QUETIAPINE FUMARATE
     Indication: Delirium
     Dosage: 25 MILLIGRAM, QD
     Dates: start: 20250115, end: 20250124
  34. QUETIAPINE FUMARATE [Concomitant]
     Active Substance: QUETIAPINE FUMARATE
     Dosage: 25 MILLIGRAM, QD
     Route: 048
     Dates: start: 20250115, end: 20250124
  35. QUETIAPINE FUMARATE [Concomitant]
     Active Substance: QUETIAPINE FUMARATE
     Dosage: 25 MILLIGRAM, QD
     Route: 048
     Dates: start: 20250115, end: 20250124
  36. QUETIAPINE FUMARATE [Concomitant]
     Active Substance: QUETIAPINE FUMARATE
     Dosage: 25 MILLIGRAM, QD
     Dates: start: 20250115, end: 20250124
  37. Codaewon forte [Concomitant]
     Indication: Cough
     Dosage: 20 MILLILITER, QD
     Dates: start: 20241223, end: 20250228
  38. Codaewon forte [Concomitant]
     Indication: Productive cough
     Dosage: 20 MILLILITER, QD
     Route: 048
     Dates: start: 20241223, end: 20250228
  39. Codaewon forte [Concomitant]
     Indication: Prophylaxis
     Dosage: 20 MILLILITER, QD
     Route: 048
     Dates: start: 20241223, end: 20250228
  40. Codaewon forte [Concomitant]
     Dosage: 20 MILLILITER, QD
     Dates: start: 20241223, end: 20250228
  41. Empra [Concomitant]
     Indication: Prophylaxis
     Dates: start: 20250125, end: 20250403
  42. Empra [Concomitant]
     Route: 048
     Dates: start: 20250125, end: 20250403
  43. Empra [Concomitant]
     Route: 048
     Dates: start: 20250125, end: 20250403
  44. Empra [Concomitant]
     Dates: start: 20250125, end: 20250403
  45. Atoren [Concomitant]
     Indication: Cerebrovascular accident
     Dosage: 10 MILLIGRAM, QD
     Dates: start: 20250125, end: 20250403
  46. Atoren [Concomitant]
     Indication: Hyperlipidaemia
     Dosage: 10 MILLIGRAM, QD
     Route: 048
     Dates: start: 20250125, end: 20250403
  47. Atoren [Concomitant]
     Dosage: 10 MILLIGRAM, QD
     Route: 048
     Dates: start: 20250125, end: 20250403
  48. Atoren [Concomitant]
     Dosage: 10 MILLIGRAM, QD
     Dates: start: 20250125, end: 20250403
  49. Q rokel [Concomitant]
     Indication: Insomnia
     Dosage: 25 MILLIGRAM, QD
     Dates: start: 20250125, end: 20250403
  50. Q rokel [Concomitant]
     Dosage: 25 MILLIGRAM, QD
     Route: 048
     Dates: start: 20250125, end: 20250403
  51. Q rokel [Concomitant]
     Dosage: 25 MILLIGRAM, QD
     Route: 048
     Dates: start: 20250125, end: 20250403
  52. Q rokel [Concomitant]
     Dosage: 25 MILLIGRAM, QD
     Dates: start: 20250125, end: 20250403
  53. Medilac ds [Concomitant]
     Indication: Prophylaxis
     Dosage: UNK
     Dates: start: 20250125, end: 20250403
  54. Medilac ds [Concomitant]
     Dosage: UNK
     Route: 048
     Dates: start: 20250125, end: 20250403
  55. Medilac ds [Concomitant]
     Dosage: UNK
     Route: 048
     Dates: start: 20250125, end: 20250403
  56. Medilac ds [Concomitant]
     Dosage: UNK
     Dates: start: 20250125, end: 20250403
  57. Silvercept [Concomitant]
     Indication: Delirium
     Dosage: 5 MILLIGRAM, QD
     Dates: start: 20250212, end: 20250403
  58. Silvercept [Concomitant]
     Dosage: 5 MILLIGRAM, QD
     Route: 048
     Dates: start: 20250212, end: 20250403
  59. Silvercept [Concomitant]
     Dosage: 5 MILLIGRAM, QD
     Route: 048
     Dates: start: 20250212, end: 20250403
  60. Silvercept [Concomitant]
     Dosage: 5 MILLIGRAM, QD
     Dates: start: 20250212, end: 20250403

REACTIONS (1)
  - Pneumonia aspiration [Fatal]

NARRATIVE: CASE EVENT DATE: 20250401
